FAERS Safety Report 16674561 (Version 9)
Quarter: 2020Q3

REPORT INFORMATION
  Report Type: Report from Study
  Country: RU (occurrence: RU)
  Receive Date: 20190806
  Receipt Date: 20200309
  Transmission Date: 20201105
  Serious: Yes (Death, Other)
  Sender: FDA-Public Use
  Company Number: RU-PFIZER INC-2019325151

PATIENT
  Age: 62 Year
  Sex: Female
  Weight: 140 kg

DRUGS (15)
  1. L?THYROXINE [LEVOTHYROXINE] [Concomitant]
     Active Substance: LEVOTHYROXINE
     Indication: HYPOTHYROIDISM
     Dosage: 50 MG, 1X/DAY
     Route: 048
     Dates: start: 2007
  2. PANTOPRAZOLE [Concomitant]
     Active Substance: PANTOPRAZOLE
     Indication: PROPHYLAXIS AGAINST GASTROINTESTINAL ULCER
     Dosage: 20 MG, 2X/DAY
     Route: 048
     Dates: start: 2012
  3. DICLOFENAC [Concomitant]
     Active Substance: DICLOFENAC
     Indication: BACK PAIN
     Dosage: 75 MG, AS NEEDED
     Route: 030
     Dates: start: 20190530
  4. DROTAVERIN [DROTAVERINE] [Concomitant]
     Indication: ABDOMINAL PAIN UPPER
     Dosage: 40 MG, 2X/DAY
     Route: 048
     Dates: start: 20190610
  5. PREDNISOLONE. [Suspect]
     Active Substance: PREDNISOLONE
     Indication: RHEUMATOID ARTHRITIS
     Dosage: TABLET, 10 MG, 1X/DAY
     Route: 048
     Dates: start: 20141002
  6. CALCIUM D3 NYCOMED [Concomitant]
     Indication: OSTEOPOROSIS
     Dosage: [1250 MG CALCIUM CARBONATE]/[400 IU COLECALCIFEROL], 2 TAB, 1X/DAY
     Route: 048
     Dates: start: 2002
  7. SPIRONOLACTONE. [Concomitant]
     Active Substance: SPIRONOLACTONE
     Indication: HYPERTENSION
     Dosage: 100 MG, 1X/DAY
     Route: 048
     Dates: start: 20160114
  8. TORASEMIDE [Concomitant]
     Active Substance: TORSEMIDE
     Indication: OEDEMA PERIPHERAL
     Dosage: 10 MG, 1X/DAY
     Route: 048
     Dates: start: 20170621
  9. ETORICOXIB. [Suspect]
     Active Substance: ETORICOXIB
     Indication: RHEUMATOID ARTHRITIS
     Dosage: TABLET, 90 MG, 1X/DAY
     Route: 048
     Dates: start: 20140901
  10. TOFACITINIB CITRATE [Suspect]
     Active Substance: TOFACITINIB CITRATE
     Indication: RHEUMATOID ARTHRITIS
     Dosage: 5 MG, 2X/DAY (BID)
     Route: 048
     Dates: start: 20141222, end: 20190626
  11. METHOTREXATE. [Suspect]
     Active Substance: METHOTREXATE
     Indication: RHEUMATOID ARTHRITIS
     Dosage: INJECTION, 20 MG, ONCE A WEEK (QW)
     Route: 058
     Dates: start: 201209
  12. FOLIC ACID. [Concomitant]
     Active Substance: FOLIC ACID
     Indication: DRUG TOXICITY PROPHYLAXIS
     Dosage: 1 MG, 1X/DAY
     Route: 048
     Dates: start: 198401
  13. LISINOPRIL. [Concomitant]
     Active Substance: LISINOPRIL
     Indication: HYPERTENSION
     Dosage: 10 MG, 1X/DAY
     Route: 048
     Dates: start: 201212
  14. WARFARIN [Concomitant]
     Active Substance: WARFARIN
     Indication: POST THROMBOTIC SYNDROME
     Dosage: 5 MG, 1X/DAY
     Route: 048
     Dates: start: 2010, end: 20190805
  15. ALENDRONIC ACID [Concomitant]
     Active Substance: ALENDRONIC ACID
     Indication: OSTEOPOROSIS
     Dosage: 70 MG, WEEKLY
     Route: 048
     Dates: start: 2009

REACTIONS (1)
  - Gastric neoplasm [Fatal]

NARRATIVE: CASE EVENT DATE: 20190626
